FAERS Safety Report 6656431-2 (Version None)
Quarter: 2010Q1

REPORT INFORMATION
  Report Type: 
  Country: None (occurrence: None)
  Receive Date: 20100329
  Receipt Date: 20100319
  Transmission Date: 20100710
  Serious: Yes (Hospitalization)
  Sender: FDA-Public Use
  Company Number: CH-JNJFOC-20100305250

PATIENT
  Age: 18 Year
  Sex: Female

DRUGS (8)
  1. RISPERDAL [Suspect]
     Indication: SCHIZOTYPAL PERSONALITY DISORDER
     Route: 048
  2. RISPERDAL [Suspect]
     Route: 048
  3. RISPERDAL [Suspect]
     Route: 048
  4. TRUXAL [Suspect]
     Indication: SCHIZOTYPAL PERSONALITY DISORDER
     Route: 048
  5. TRUXAL [Suspect]
     Route: 048
  6. TRUXAL [Suspect]
     Route: 048
  7. GESTODENE AND ETHINYL ESTRADIOL [Concomitant]
     Indication: DRUG USE FOR UNKNOWN INDICATION
     Dosage: 1DF
     Route: 048
  8. DOSTINEX [Concomitant]
     Indication: DRUG USE FOR UNKNOWN INDICATION
     Route: 065

REACTIONS (6)
  - ELECTROCARDIOGRAM QT PROLONGED [None]
  - FATIGUE [None]
  - INTENTIONAL OVERDOSE [None]
  - MULTIPLE DRUG OVERDOSE INTENTIONAL [None]
  - SEDATION [None]
  - TACHYCARDIA [None]
